FAERS Safety Report 25479791 (Version 1)
Quarter: 2025Q2

REPORT INFORMATION
  Report Type: Report from Study
  Country: US (occurrence: US)
  Receive Date: 20250625
  Receipt Date: 20250625
  Transmission Date: 20250717
  Serious: Yes (Hospitalization)
  Sender: AGIOS PHARMACEUTICALS
  Company Number: US-AGIOS-2506US04320

PATIENT
  Age: 93 Year
  Sex: Female

DRUGS (1)
  1. MITAPIVAT [Suspect]
     Active Substance: MITAPIVAT
     Indication: Pyruvate kinase deficiency anaemia
     Route: 065
     Dates: start: 20231027

REACTIONS (3)
  - Cardiac disorder [Unknown]
  - Heart valve incompetence [Unknown]
  - Muscle atrophy [Unknown]

NARRATIVE: CASE EVENT DATE: 20250505
